FAERS Safety Report 10032540 (Version 1)
Quarter: 2014Q1

REPORT INFORMATION
  Report Type: Spontaneous
  Country: CA (occurrence: CA)
  Receive Date: 20140324
  Receipt Date: 20140324
  Transmission Date: 20141002
  Serious: Yes (Hospitalization)
  Sender: FDA-Public Use
  Company Number: CA-BRISTOL-MYERS SQUIBB COMPANY-20529780

PATIENT
  Age: 57 Year
  Sex: Female
  Weight: 113.83 kg

DRUGS (2)
  1. ABILIFY TABS [Suspect]
     Indication: SCHIZOPHRENIA
     Dates: start: 201212
  2. SERTRALINE [Concomitant]

REACTIONS (1)
  - Influenza [Recovering/Resolving]
